FAERS Safety Report 5627578-4 (Version None)
Quarter: 2008Q1

REPORT INFORMATION
  Report Type: 
  Country: None (occurrence: None)
  Receive Date: 20080215
  Receipt Date: 20080205
  Transmission Date: 20080703
  Serious: Yes (Other)
  Sender: FDA-Public Use
  Company Number: US-ROCHE-448623

PATIENT
  Age: 70 Year
  Sex: Female
  Weight: 54.4 kg

DRUGS (4)
  1. BONIVA [Suspect]
     Indication: OSTEOPOROSIS
     Dosage: STOPPED FOR FEW MONTHS.
     Route: 048
     Dates: start: 20040101
  2. BONIVA [Suspect]
     Route: 048
  3. LORTAB [Concomitant]
     Dosage: AS NEEDED.
  4. DYAZIDE [Concomitant]

REACTIONS (4)
  - DYSPEPSIA [None]
  - GASTROOESOPHAGEAL REFLUX DISEASE [None]
  - SKIN CANCER [None]
  - VITAMIN D DEFICIENCY [None]
